FAERS Safety Report 6840063-7 (Version None)
Quarter: 2010Q3

REPORT INFORMATION
  Report Type: 
  Country: None (occurrence: None)
  Receive Date: 20100714
  Receipt Date: 20100708
  Transmission Date: 20110219
  Serious: Yes (Hospitalization)
  Sender: FDA-Public Use
  Company Number: FR-ROCHE-714328

PATIENT
  Sex: Female

DRUGS (3)
  1. AVASTIN [Suspect]
     Dosage: FORM:INJECTION;TOTAL 16 CYCLES GIVEN
     Route: 031
     Dates: start: 20070401, end: 20100610
  2. KARDEGIC [Concomitant]
     Indication: CAROTID ARTERY STENOSIS
     Route: 048
     Dates: start: 20100101
  3. ATACAND [Concomitant]
     Route: 048
     Dates: start: 20080101

REACTIONS (1)
  - CONGESTIVE CARDIOMYOPATHY [None]
